FAERS Safety Report 5221846-6 (Version None)
Quarter: 2007Q1

REPORT INFORMATION
  Report Type: 
  Country: None (occurrence: None)
  Receive Date: 20070125
  Receipt Date: 20070125
  Transmission Date: 20070707
  Serious: No
  Sender: FDA-Public Use
  Company Number: None

PATIENT
  Age: 67 Year
  Sex: Female
  Weight: 72.5755 kg

DRUGS (1)
  1. VALSARTAN AND HYDROCHLOROTHIAZIDE [Suspect]
     Indication: HYPERTENSION
     Dosage: 1 TAB QD PO
     Route: 048
     Dates: start: 20061227, end: 20061229

REACTIONS (5)
  - FATIGUE [None]
  - HEADACHE [None]
  - PERSONALITY CHANGE [None]
  - POOR QUALITY SLEEP [None]
  - SOMNOLENCE [None]
